FAERS Safety Report 15717393 (Version 1)
Quarter: 2018Q4

REPORT INFORMATION
  Report Type: Spontaneous
  Country: TR (occurrence: TR)
  Receive Date: 20181213
  Receipt Date: 20181213
  Transmission Date: 20190205
  Serious: No
  Sender: FDA-Public Use
  Company Number: TR-BIO PRODUCTS LABORATORY LTD-2060123

PATIENT
  Age: 4 Year
  Sex: Female

DRUGS (2)
  1. GENERIC IVIG [Suspect]
     Active Substance: HUMAN IMMUNOGLOBULIN G
     Route: 042
  2. STEROID AND CHOLINESTERASE INHIBITOR TREATMENTS [Concomitant]

REACTIONS (2)
  - Therapy non-responder [Recovering/Resolving]
  - Off label use [Recovering/Resolving]
